FAERS Safety Report 8489756-9 (Version None)
Quarter: 2012Q3

REPORT INFORMATION
  Report Type: 
  Country: None (occurrence: None)
  Receive Date: 20120705
  Receipt Date: 20120628
  Transmission Date: 20120928
  Serious: Yes (Hospitalization)
  Sender: FDA-Public Use
  Company Number: PL-GLAXOSMITHKLINE-Z0015653B

PATIENT
  Sex: Female
  Weight: 55 kg

DRUGS (1)
  1. POTIGA [Suspect]
     Indication: PARTIAL SEIZURES
     Route: 048
     Dates: start: 20120412, end: 20120519

REACTIONS (1)
  - EPILEPSY [None]
